FAERS Safety Report 8100828 (Version 3)
Quarter: 2013Q4

REPORT INFORMATION
  Report Type: Spontaneous
  Country: US (occurrence: US)
  Receive Date: 20110822
  Receipt Date: 20131122
  Transmission Date: 20140711
  Serious: Yes (Other)
  Sender: FDA-Public Use
  Company Number: US-BAYER-2011-075085

PATIENT
  Age: 23 Year
  Sex: Female
  Weight: 61.22 kg

DRUGS (10)
  1. YAZ [Suspect]
     Indication: ORAL CONTRACEPTION
     Dosage: UNK
     Dates: start: 20080108, end: 200806
  2. YAZ [Suspect]
     Indication: ORAL CONTRACEPTION
     Dosage: UNK
     Dates: start: 200809, end: 200810
  3. YAZ [Suspect]
     Indication: ORAL CONTRACEPTION
     Dosage: UNK
     Dates: start: 200904, end: 200905
  4. SPRINTEC [Concomitant]
     Dosage: UNK
     Dates: start: 20081027, end: 20090319
  5. PROTONIX [Concomitant]
     Dosage: UNK
     Dates: start: 20080429
  6. LEVSIN [Concomitant]
     Dosage: UNK
     Dates: start: 20080429
  7. HYOSCYAMINE [Concomitant]
  8. BENTYL [Concomitant]
     Dosage: 20 MG QID (INTERPRETED AS FOUR TIMES A DAY) PRN
     Route: 048
     Dates: start: 20080605
  9. ZOFRAN [Concomitant]
     Dosage: 8 MG QID PRN
     Route: 048
     Dates: start: 20080623
  10. ALBUTEROL [Concomitant]
     Dosage: UNK UNK, PRN

REACTIONS (4)
  - Cholecystectomy [None]
  - Cholecystitis chronic [None]
  - Pain [None]
  - Injury [None]
